FAERS Safety Report 6451967-1 (Version None)
Quarter: 2009Q4

REPORT INFORMATION
  Report Type: 
  Country: None (occurrence: None)
  Receive Date: 20091123
  Receipt Date: 20091022
  Transmission Date: 20100525
  Serious: No
  Sender: FDA-Public Use
  Company Number: US-BAYER-200915949BCC

PATIENT
  Age: 45 Year
  Sex: Female

DRUGS (2)
  1. FINACEA [Suspect]
     Indication: DRUG USE FOR UNKNOWN INDICATION
     Route: 061
     Dates: start: 20091012
  2. ELIDEL [Concomitant]
     Indication: ECZEMA
     Route: 065

REACTIONS (1)
  - RASH [None]
